FAERS Safety Report 8603074 (Version 3)
Quarter: 2013Q3

REPORT INFORMATION
  Report Type: Spontaneous
  Country: US (occurrence: US)
  Receive Date: 20120607
  Receipt Date: 20130821
  Transmission Date: 20140515
  Serious: Yes (Other)
  Sender: FDA-Public Use
  Company Number: US-ASTRAZENECA-2012SE35472

PATIENT
  Age: 42 Year
  Sex: Female
  Weight: 95.3 kg

DRUGS (6)
  1. SEROQUEL [Suspect]
     Indication: BIPOLAR DISORDER
     Route: 048
     Dates: start: 2008, end: 201307
  2. SEROQUEL [Suspect]
     Indication: MOOD SWINGS
     Route: 048
     Dates: start: 2008, end: 201307
  3. SEROQUEL [Suspect]
     Indication: BIPOLAR DISORDER
     Route: 048
  4. SEROQUEL [Suspect]
     Indication: MOOD SWINGS
     Route: 048
  5. SEROQUEL [Suspect]
     Indication: BIPOLAR DISORDER
     Route: 048
  6. SEROQUEL [Suspect]
     Indication: MOOD SWINGS
     Route: 048

REACTIONS (10)
  - Suicidal ideation [Unknown]
  - Homicidal ideation [Unknown]
  - Nosophobia [Unknown]
  - Depressed mood [Unknown]
  - Crying [Unknown]
  - Agitation [Unknown]
  - Frustration [Unknown]
  - Fatigue [Unknown]
  - Hypersomnia [Unknown]
  - Drug dose omission [Unknown]
